FAERS Safety Report 6586355-0 (Version None)
Quarter: 2010Q1

REPORT INFORMATION
  Report Type: 
  Country: None (occurrence: None)
  Receive Date: 20100217
  Receipt Date: 20100208
  Transmission Date: 20100710
  Serious: Yes (Hospitalization)
  Sender: FDA-Public Use
  Company Number: AT-GENENTECH-297934

PATIENT
  Sex: Male
  Weight: 80 kg

DRUGS (1)
  1. MABTHERA [Suspect]
     Indication: POLYARTHRITIS
     Dosage: 500 MG, QDX2D/21DC
     Route: 042
     Dates: start: 20090601

REACTIONS (1)
  - MYOCARDIAL INFARCTION [None]
